FAERS Safety Report 9367043 (Version 1)
Quarter: 2013Q2

REPORT INFORMATION
  Report Type: Spontaneous
  Country: US (occurrence: US)
  Receive Date: 20130625
  Receipt Date: 20130625
  Transmission Date: 20140414
  Serious: Yes (Hospitalization)
  Sender: FDA-Public Use
  Company Number: US-TEVA-414203USA

PATIENT
  Sex: Female

DRUGS (2)
  1. BUDESONIDE [Suspect]
     Dosage: 0.5MG/2 ML
     Route: 055
  2. PREDNISONE [Concomitant]

REACTIONS (2)
  - Chronic obstructive pulmonary disease [Unknown]
  - Wrong technique in drug usage process [Unknown]
